FAERS Safety Report 4986201-2 (Version None)
Quarter: 2006Q2

REPORT INFORMATION
  Report Type: 
  Country: None (occurrence: None)
  Receive Date: 20060428
  Receipt Date: 20051003
  Transmission Date: 20061013
  Serious: Yes (Hospitalization, Other)
  Sender: FDA-Public Use
  Company Number: US-MERCK-0510USA02888

PATIENT
  Age: 44 Year
  Sex: Male
  Weight: 94 kg

DRUGS (1)
  1. VIOXX [Suspect]
     Indication: PAIN
     Route: 048
     Dates: start: 20000421, end: 20000701

REACTIONS (11)
  - ANAL FISSURE [None]
  - ANGINA PECTORIS [None]
  - BRONCHITIS [None]
  - CARDIOVASCULAR DISORDER [None]
  - CORONARY ARTERY OCCLUSION [None]
  - DEPRESSION [None]
  - GASTROOESOPHAGEAL REFLUX DISEASE [None]
  - HERNIA [None]
  - MYOCARDIAL INFARCTION [None]
  - PALPITATIONS [None]
  - VENTRICULAR EXTRASYSTOLES [None]
